FAERS Safety Report 19704388 (Version 1)
Quarter: 2021Q3

REPORT INFORMATION
  Report Type: Spontaneous
  Country: US (occurrence: US)
  Receive Date: 20210816
  Receipt Date: 20210816
  Transmission Date: 20211014
  Serious: Yes (Other)
  Sender: FDA-Public Use
  Company Number: US-ALKEM LABORATORIES LIMITED-US-ALKEM-2021-05104

PATIENT

DRUGS (3)
  1. RIFAPENTINE [Suspect]
     Active Substance: RIFAPENTINE
     Indication: PROPHYLAXIS
     Dosage: UNK
     Route: 064
  2. ISONIAZID. [Suspect]
     Active Substance: ISONIAZID
     Indication: PROPHYLAXIS
     Dosage: UNK
     Route: 064
  3. ISONIAZID. [Suspect]
     Active Substance: ISONIAZID
     Dosage: UNK
     Route: 065

REACTIONS (2)
  - Prothrombin time prolonged [Unknown]
  - Foetal exposure during pregnancy [Unknown]
